FAERS Safety Report 12336631 (Version 1)
Quarter: 2016Q2

REPORT INFORMATION
  Report Type: Spontaneous
  Country: US (occurrence: None)
  Receive Date: 20160504
  Receipt Date: 20160504
  Transmission Date: 20160815
  Serious: Yes (Life-Threatening, Hospitalization)
  Sender: FDA-Public Use
  Company Number: None

PATIENT
  Age: 80 Year
  Sex: Male
  Weight: 92.2 kg

DRUGS (1)
  1. DIGOXIN. [Suspect]
     Active Substance: DIGOXIN
     Indication: ATRIAL FIBRILLATION
     Route: 048
     Dates: start: 20020606, end: 20160429

REACTIONS (5)
  - Respiratory failure [None]
  - Acute kidney injury [None]
  - Hypotension [None]
  - Bradycardia [None]
  - Toxicity to various agents [None]

NARRATIVE: CASE EVENT DATE: 20160429
